FAERS Safety Report 15419567 (Version 1)
Quarter: 2018Q3

REPORT INFORMATION
  Report Type: Spontaneous
  Country: IT (occurrence: IT)
  Receive Date: 20180924
  Receipt Date: 20180924
  Transmission Date: 20181010
  Serious: Yes (Hospitalization)
  Sender: FDA-Public Use
  Company Number: IT-MYLANLABS-2018M1069229

PATIENT
  Age: 54 Year
  Sex: Female

DRUGS (1)
  1. DALMADORM 30 MG CAPSULE RIGIDE [Suspect]
     Active Substance: FLURAZEPAM\FLURAZEPAM HYDROCHLORIDE
     Indication: PRODUCT USED FOR UNKNOWN INDICATION
     Dosage: 10 DF, TOTAL
     Route: 048
     Dates: start: 20180414, end: 20180414

REACTIONS (3)
  - Suicide attempt [Recovered/Resolved]
  - Drug abuse [Recovered/Resolved]
  - Sopor [Recovered/Resolved]

NARRATIVE: CASE EVENT DATE: 20180414
